FAERS Safety Report 4321151-6 (Version None)
Quarter: 2004Q1

REPORT INFORMATION
  Report Type: 
  Country: None (occurrence: None)
  Receive Date: 20040315
  Receipt Date: 20031003
  Transmission Date: 20041129
  Serious: Yes (Hospitalization)
  Sender: FDA-Public Use
  Company Number: PHEH2003US09101

PATIENT
  Age: 73 Year
  Sex: Female
  Weight: 49.9 kg

DRUGS (1)
  1. TRILEPTAL [Suspect]
     Indication: NEUROPATHY
     Dosage: 300 MG, BID, ORAL
     Route: 048
     Dates: start: 20030601, end: 20030620

REACTIONS (1)
  - HYPONATRAEMIA [None]
